FAERS Safety Report 4953949-5 (Version None)
Quarter: 2006Q1

REPORT INFORMATION
  Report Type: 
  Country: None (occurrence: None)
  Receive Date: 20060327
  Receipt Date: 20051215
  Transmission Date: 20060701
  Serious: Yes (Hospitalization, Other)
  Sender: FDA-Public Use
  Company Number: DE-BRISTOL-MYERS SQUIBB COMPANY-13301163

PATIENT
  Age: 36 Year
  Sex: Male
  Weight: 78 kg

DRUGS (4)
  1. SUSTIVA [Suspect]
     Indication: HIV INFECTION
     Dosage: INTERMITTENT INTERRUPTIONS IN 2003 DUE TO MITOMYCIN ADMINISTRATION.
     Dates: start: 19990901
  2. ABACAVIR [Suspect]
     Indication: HIV INFECTION
     Dosage: INTERMITTENT INTERRUPTIONS IN 2003 DUE TO MITOMYCIN ADMINISTRATION.
     Dates: start: 19990901
  3. LAMIVUDINE [Suspect]
     Indication: HIV INFECTION
     Dosage: INTERMITTENT INTERRUPTIONS IN 2003 DUE TO MITOMYCIN ADMINISTRATION.
     Dates: start: 19990901
  4. ZIDOVUDINE [Suspect]
     Indication: HIV INFECTION
     Dosage: INTERMITTENT INTERRUPTIONS IN 2003 DUE TO MITOMYCIN ADMINISTRATION.
     Dates: start: 19990901, end: 20031001

REACTIONS (4)
  - APHTHOUS STOMATITIS [None]
  - MYELODYSPLASTIC SYNDROME [None]
  - PANCYTOPENIA [None]
  - RECTAL CANCER [None]
